FAERS Safety Report 20899079 (Version 1)
Quarter: 2022Q2

REPORT INFORMATION
  Report Type: Spontaneous
  Country: GB (occurrence: GB)
  Receive Date: 20220601
  Receipt Date: 20220601
  Transmission Date: 20220721
  Serious: Yes (Other)
  Sender: FDA-Public Use
  Company Number: GB-JNJFOC-20220554288

PATIENT
  Age: 28 Year
  Sex: Female

DRUGS (4)
  1. STELARA [Suspect]
     Active Substance: USTEKINUMAB
     Indication: Colitis ulcerative
     Route: 058
     Dates: start: 20200330
  2. PREDNISOLONE [Concomitant]
     Active Substance: PREDNISOLONE
  3. MESALAMINE [Concomitant]
     Active Substance: MESALAMINE
  4. AZATHIOPRINE [Concomitant]
     Active Substance: AZATHIOPRINE
     Dosage: TPMT LOW

REACTIONS (2)
  - Rectal haemorrhage [Unknown]
  - Proctitis [Unknown]
